FAERS Safety Report 15048891 (Version 1)
Quarter: 2018Q3

REPORT INFORMATION
  Report Type: Spontaneous
  Country: FR (occurrence: FR)
  Receive Date: 20180622
  Receipt Date: 20180622
  Transmission Date: 20181010
  Serious: Yes (Death)
  Sender: FDA-Public Use
  Company Number: FR-MERCK KGAA-2049824

PATIENT
  Age: 24 Year
  Sex: Male
  Weight: 85 kg

DRUGS (9)
  1. TRAMADOL MYLAN [Concomitant]
     Active Substance: TRAMADOL
     Route: 048
     Dates: start: 20180416, end: 20180520
  2. RISPERIDONE BIOGARAN [Suspect]
     Active Substance: RISPERIDONE
     Route: 048
     Dates: start: 20150715, end: 20180520
  3. NORSET [Suspect]
     Active Substance: MIRTAZAPINE
     Route: 048
     Dates: start: 20150715, end: 20180520
  4. NOVOTHYROX [Suspect]
     Active Substance: LEVOTHYROXINE SODIUM
     Indication: HYPOTHYROIDISM
     Route: 048
     Dates: start: 20160302
  5. DEPAKINE [Suspect]
     Active Substance: VALPROATE SODIUM
     Route: 048
     Dates: start: 20160707, end: 20180520
  6. TIAPRIDE [Suspect]
     Active Substance: TIAPRIDE
     Route: 048
     Dates: start: 20150715, end: 20180520
  7. FLUOXETINE [Suspect]
     Active Substance: FLUOXETINE HYDROCHLORIDE
     Route: 048
     Dates: start: 20150715, end: 20180520
  8. ZONEGRAN [Suspect]
     Active Substance: ZONISAMIDE
     Route: 048
     Dates: start: 20180221, end: 20180520
  9. LEXOMIL [Suspect]
     Active Substance: BROMAZEPAM
     Route: 048
     Dates: start: 20150715, end: 20180520

REACTIONS (1)
  - Lung disorder [Fatal]

NARRATIVE: CASE EVENT DATE: 20180403
